FAERS Safety Report 23783444 (Version 1)
Quarter: 2024Q2

REPORT INFORMATION
  Report Type: Spontaneous
  Country: US (occurrence: US)
  Receive Date: 20240425
  Receipt Date: 20240425
  Transmission Date: 20240715
  Serious: No
  Sender: FDA-Public Use
  Company Number: US-MEITHEAL-2024MPSPO00031

PATIENT
  Age: 57 Year
  Sex: Female

DRUGS (2)
  1. REGADENOSON [Suspect]
     Active Substance: REGADENOSON
     Indication: Scan myocardial perfusion
     Dosage: SINGLE DOSE PRE-FILLED SYRINGE
     Route: 065
  2. REGADENOSON [Suspect]
     Active Substance: REGADENOSON

REACTIONS (2)
  - Eye swelling [Unknown]
  - Headache [Not Recovered/Not Resolved]
